FAERS Safety Report 21025267 (Version 1)
Quarter: 2022Q2

REPORT INFORMATION
  Report Type: Spontaneous
  Country: BG (occurrence: None)
  Receive Date: 20220630
  Receipt Date: 20220630
  Transmission Date: 20220720
  Serious: Yes (Hospitalization)
  Sender: FDA-Public Use
  Company Number: BG-ROCHE-3122753

PATIENT
  Age: 75 Year
  Sex: Female

DRUGS (5)
  1. TOCILIZUMAB [Suspect]
     Active Substance: TOCILIZUMAB
     Indication: Rheumatoid arthritis
     Route: 058
     Dates: start: 201809, end: 20220603
  2. TOCILIZUMAB [Suspect]
     Active Substance: TOCILIZUMAB
     Route: 058
     Dates: start: 20220620
  3. DICLOFENAC [Concomitant]
     Active Substance: DICLOFENAC
  4. CEFUROXIME [Concomitant]
     Active Substance: CEFUROXIME
  5. LEVOFLOXACIN [Concomitant]
     Active Substance: LEVOFLOXACIN
     Route: 058

REACTIONS (2)
  - Osteomyelitis [Recovering/Resolving]
  - Osteitis [Recovering/Resolving]

NARRATIVE: CASE EVENT DATE: 20220401
